FAERS Safety Report 17934591 (Version 1)
Quarter: 2020Q2

REPORT INFORMATION
  Report Type: Spontaneous
  Country: US (occurrence: US)
  Receive Date: 20200623
  Receipt Date: 20200623
  Transmission Date: 20200714
  Serious: Yes (Hospitalization)
  Sender: FDA-Public Use
  Company Number: None

PATIENT
  Sex: Male

DRUGS (13)
  1. ALPRAZOLAM. [Concomitant]
     Active Substance: ALPRAZOLAM
  2. SMZ/TMP [Concomitant]
     Active Substance: SULFAMETHOXAZOLE\TRIMETHOPRIM
  3. CARVEDILOL. [Concomitant]
     Active Substance: CARVEDILOL
  4. MYCOPHENOLAT [Concomitant]
     Active Substance: MYCOPHENOLATE MOFETIL
  5. VITAMIN D [Concomitant]
     Active Substance: VITAMIN D NOS
  6. ATOVAQUONE. [Concomitant]
     Active Substance: ATOVAQUONE
  7. FEROSUL [Concomitant]
     Active Substance: FERROUS SULFATE
  8. ATORVASTATIN [Concomitant]
     Active Substance: ATORVASTATIN
  9. TACROLIMUS. [Concomitant]
     Active Substance: TACROLIMUS
  10. RETACRIT [Suspect]
     Active Substance: EPOETIN ALFA-EPBX
     Indication: ANAEMIA
     Dosage: ?          OTHER STRENGTH:10,000 U/ML;?
     Route: 058
     Dates: start: 20191130
  11. FAMOTIDINE. [Concomitant]
     Active Substance: FAMOTIDINE
  12. VALSART/HCTZ [Concomitant]
  13. OXYCODONE AND ACETAMINOPHEN [Concomitant]
     Active Substance: ACETAMINOPHEN\OXYCODONE HYDROCHLORIDE

REACTIONS (1)
  - Infection [None]
